FAERS Safety Report 20779616 (Version 1)
Quarter: 2022Q2

REPORT INFORMATION
  Report Type: Spontaneous
  Country: CA (occurrence: CA)
  Receive Date: 20220503
  Receipt Date: 20220503
  Transmission Date: 20220721
  Serious: Yes (Other)
  Sender: FDA-Public Use
  Company Number: CA-UCBSA-2022023922

PATIENT
  Age: 25 Year
  Sex: Male
  Weight: 113.3 kg

DRUGS (6)
  1. KEPPRA [Suspect]
     Active Substance: LEVETIRACETAM
     Indication: Seizure
     Dosage: 500 MILLIGRAM, 2X/DAY (BID)
     Route: 048
  2. KEPPRA [Suspect]
     Active Substance: LEVETIRACETAM
     Dosage: 750 MILLIGRAM, 2X/DAY (BID)
     Route: 048
  3. KEPPRA [Suspect]
     Active Substance: LEVETIRACETAM
     Dosage: 1000 MILLIGRAM, 2X/DAY (BID)
     Route: 048
  4. TOZINAMERAN [Concomitant]
     Active Substance: TOZINAMERAN
     Indication: COVID-19 immunisation
     Dosage: UNK
     Route: 030
     Dates: start: 20210521, end: 20210625
  5. CANNABIS SATIVA SUBSP. INDICA TOP [Concomitant]
     Active Substance: CANNABIS SATIVA SUBSP. INDICA TOP
     Indication: Product used for unknown indication
  6. VALPROATE SODIUM [Concomitant]
     Active Substance: VALPROATE SODIUM
     Indication: Product used for unknown indication

REACTIONS (32)
  - Seizure [Unknown]
  - Loss of consciousness [Unknown]
  - Conjunctival haemorrhage [Unknown]
  - Temporal lobe epilepsy [Unknown]
  - Postictal state [Unknown]
  - Swelling of eyelid [Unknown]
  - Swelling face [Unknown]
  - Contusion [Unknown]
  - Skin abrasion [Unknown]
  - Eyelid abrasion [Unknown]
  - Confusional state [Unknown]
  - Eye pain [Unknown]
  - Pain [Unknown]
  - Agitation [Unknown]
  - Headache [Unknown]
  - Nausea [Unknown]
  - Anxiety [Unknown]
  - Depressed mood [Recovered/Resolved]
  - Irritability [Unknown]
  - Loss of personal independence in daily activities [Unknown]
  - Malaise [Unknown]
  - Tongue biting [Unknown]
  - Vomiting [Unknown]
  - Hyperhidrosis [Unknown]
  - Retrograde amnesia [Unknown]
  - Haematoma [Unknown]
  - Chest discomfort [Unknown]
  - White blood cell count increased [Recovering/Resolving]
  - Mean cell volume increased [Unknown]
  - Neutrophil count increased [Unknown]
  - Blood lactic acid increased [Unknown]
  - Monocyte count increased [Unknown]

NARRATIVE: CASE EVENT DATE: 20210101
